FAERS Safety Report 14310386 (Version 1)
Quarter: 2017Q4

REPORT INFORMATION
  Report Type: Spontaneous
  Country: US (occurrence: US)
  Receive Date: 20171220
  Receipt Date: 20171220
  Transmission Date: 20180321
  Serious: Yes (Other)
  Sender: FDA-Public Use
  Company Number: US-STANDARD HOMEOPATHIC COMPANY-2037499

PATIENT
  Age: 82 Year
  Sex: Male
  Weight: 62.73 kg

DRUGS (1)
  1. HYLAND^S HEADACHE (HOMEOPATHIC) [Suspect]
     Active Substance: HOMEOPATHICS
     Indication: HEADACHE
     Route: 048
     Dates: start: 2012, end: 2017

REACTIONS (1)
  - Prostate cancer recurrent [None]

NARRATIVE: CASE EVENT DATE: 201712
